FAERS Safety Report 9391472 (Version 1)
Quarter: 2013Q3

REPORT INFORMATION
  Report Type: Spontaneous
  Country: US (occurrence: None)
  Receive Date: 20130705
  Receipt Date: 20130705
  Transmission Date: 20140515
  Serious: Yes (Hospitalization)
  Sender: FDA-Public Use
  Company Number: USA/USA/13/0030332

PATIENT
  Age: 80 Year
  Sex: Female
  Weight: 78.02 kg

DRUGS (8)
  1. AUGMENTIN [Suspect]
     Indication: PNEUMONIA
     Route: 048
     Dates: start: 20130430, end: 20130501
  2. CRIZOTINIB [Suspect]
     Indication: NON-SMALL CELL LUNG CANCER
     Route: 048
     Dates: start: 20130315
  3. ALDACTONE (SPIRONOLACTONE) [Suspect]
     Indication: OEDEMA
     Route: 048
     Dates: start: 2012
  4. BUMEX [Suspect]
     Indication: OEDEMA
     Route: 048
     Dates: start: 20130423
  5. ZOFRAN (ONDANSETRON) [Concomitant]
  6. SYNTHROID (LEVOTHYROXINE SODIUM) [Concomitant]
  7. LIPITOR (ATORVASTATIN CALCIUM) [Concomitant]
  8. LOVENOX (ENOXAPARIN SODIUM) [Concomitant]

REACTIONS (4)
  - Pleural effusion [None]
  - Ileus [None]
  - Dehydration [None]
  - Gastroenteritis viral [None]
